FAERS Safety Report 5359098-9 (Version None)
Quarter: 2007Q2

REPORT INFORMATION
  Report Type: 
  Country: None (occurrence: None)
  Receive Date: 20070615
  Receipt Date: 20070613
  Transmission Date: 20071010
  Serious: Yes (Other)
  Sender: FDA-Public Use
  Company Number: JP-BRISTOL-MYERS SQUIBB COMPANY-13742192

PATIENT
  Age: 6 Decade
  Sex: Male

DRUGS (4)
  1. BARACLUDE [Suspect]
  2. LAMIVUDINE [Suspect]
  3. ADEFOVIR DIPIVOXIL KIT [Suspect]
  4. URSO 250 [Concomitant]
     Route: 048

REACTIONS (1)
  - ANAEMIA [None]
